FAERS Safety Report 7261218-6 (Version None)
Quarter: 2011Q1

REPORT INFORMATION
  Report Type: 
  Country: None (occurrence: None)
  Receive Date: 20110130
  Receipt Date: 20100928
  Transmission Date: 20110831
  Serious: Yes (Other)
  Sender: FDA-Public Use
  Company Number: US-ABBOTT-10P-163-0674446-00

PATIENT
  Age: 56 Year
  Sex: Female

DRUGS (17)
  1. PREDNISONE [Concomitant]
     Indication: RHEUMATOID ARTHRITIS
  2. HYDROXYCHLOROQUINE [Concomitant]
     Dosage: 2 TABS
  3. PROTONIX [Concomitant]
     Indication: GASTRIC DISORDER
  4. ELMIRON [Concomitant]
     Indication: CYSTITIS
  5. HYDROCODONE [Concomitant]
     Indication: PAIN
     Dosage: 10/325 1-2 TABS THREE TIMES A DAY
  6. PREMARIN [Concomitant]
  7. HUMIRA [Suspect]
     Indication: RHEUMATOID ARTHRITIS
     Route: 058
     Dates: start: 20100401
  8. METHOTREXATE [Concomitant]
     Indication: RHEUMATOID ARTHRITIS
  9. FOLIC ACID [Concomitant]
     Indication: VITAMIN SUPPLEMENTATION
  10. TRAZODONE [Concomitant]
     Indication: INSOMNIA
  11. CLONAZEPAM [Concomitant]
     Indication: INSOMNIA
     Dosage: 1/2  TAB TO 1 TAB AT NIGHT
  12. ASPIRIN [Concomitant]
  13. PREMARIN [Concomitant]
     Indication: VULVOVAGINAL DRYNESS
     Dosage: EVERY NIGHT FOR THREE WEEKS THEN TWICE PER WEEK
     Route: 067
  14. ZOLOFT [Concomitant]
     Indication: DEPRESSION
  15. MULTI-VITAMIN [Concomitant]
     Indication: VITAMIN SUPPLEMENTATION
  16. CALCIUM CHEWS [Concomitant]
     Indication: MINERAL SUPPLEMENTATION
  17. METHOCARBAMOL [Concomitant]
     Indication: MUSCLE RELAXANT THERAPY

REACTIONS (2)
  - FALL [None]
  - FIBULA FRACTURE [None]
